FAERS Safety Report 12220809 (Version 4)
Quarter: 2016Q3

REPORT INFORMATION
  Report Type: Spontaneous
  Country: US (occurrence: US)
  Receive Date: 20160330
  Receipt Date: 20160808
  Transmission Date: 20161109
  Serious: No
  Sender: FDA-Public Use
  Company Number: US-PFIZER INC-2016179923

PATIENT
  Age: 73 Year
  Sex: Female
  Weight: 83.91 kg

DRUGS (3)
  1. XELJANZ [Suspect]
     Active Substance: TOFACITINIB CITRATE
     Indication: RHEUMATOID ARTHRITIS
     Dosage: 5 MG, TABLET, TWO A DAY
     Route: 048
     Dates: start: 20160301
  2. METHOTREXATE. [Concomitant]
     Active Substance: METHOTREXATE
  3. XELJANZ [Suspect]
     Active Substance: TOFACITINIB CITRATE
     Dosage: 10 MG, UNK
     Dates: start: 20160401, end: 20160530

REACTIONS (4)
  - Headache [Recovering/Resolving]
  - Stomatitis [Recovered/Resolved]
  - Dizziness [Recovering/Resolving]
  - Allergic sinusitis [Unknown]

NARRATIVE: CASE EVENT DATE: 2016
